FAERS Safety Report 5877112-9 (Version None)
Quarter: 2008Q3

REPORT INFORMATION
  Report Type: 
  Country: None (occurrence: None)
  Receive Date: 20080910
  Receipt Date: 20080903
  Transmission Date: 20090109
  Serious: Yes (Hospitalization)
  Sender: FDA-Public Use
  Company Number: JP-AVENTIS-200816334GDDC

PATIENT
  Age: 63 Year
  Sex: Male

DRUGS (26)
  1. RIFADIN [Suspect]
     Indication: PULMONARY TUBERCULOSIS
     Route: 048
     Dates: start: 20080529
  2. RIFADIN [Suspect]
     Dates: start: 20080627
  3. RIFADIN [Suspect]
     Indication: TUBERCULOSIS
     Route: 048
     Dates: start: 20080529
  4. RIFADIN [Suspect]
     Dates: start: 20080627
  5. ISONIAZID [Suspect]
     Indication: PULMONARY TUBERCULOSIS
     Route: 048
     Dates: start: 20080529
  6. ISONIAZID [Suspect]
     Dates: start: 20080615
  7. ISONIAZID [Suspect]
     Indication: TUBERCULOSIS
     Route: 048
     Dates: start: 20080529
  8. ISONIAZID [Suspect]
     Dates: start: 20080615
  9. PYRAZINAMIDE [Suspect]
     Indication: PULMONARY TUBERCULOSIS
     Dosage: DOSE QUANTITY: 1
     Route: 048
     Dates: start: 20080531
  10. ETHAMBUTOL HCL [Suspect]
     Indication: PULMONARY TUBERCULOSIS
     Route: 048
     Dates: start: 20080529
  11. ETHAMBUTOL HCL [Suspect]
     Dates: start: 20080615
  12. ETHAMBUTOL HCL [Suspect]
     Indication: TUBERCULOSIS
     Route: 048
     Dates: start: 20080529
  13. ETHAMBUTOL HCL [Suspect]
     Dates: start: 20080615
  14. PYDOXAL [Concomitant]
     Indication: PULMONARY TUBERCULOSIS
     Route: 048
  15. PYDOXAL [Concomitant]
     Route: 048
  16. WARFARIN SODIUM [Concomitant]
     Indication: AORTIC VALVE REPLACEMENT
     Route: 048
     Dates: start: 20010101
  17. DIGOSIN [Concomitant]
     Indication: AORTIC VALVE REPLACEMENT
     Route: 048
     Dates: start: 20010101
  18. SUNRYTHM [Concomitant]
     Indication: AORTIC VALVE REPLACEMENT
     Route: 048
     Dates: start: 20010101
  19. SIGMART [Concomitant]
     Indication: AORTIC VALVE REPLACEMENT
     Route: 048
     Dates: start: 20010101
  20. RENIVACE [Concomitant]
     Indication: AORTIC VALVE REPLACEMENT
     Route: 048
     Dates: start: 20010101
  21. BERIZYM                            /00517401/ [Concomitant]
     Route: 048
     Dates: start: 20010101
  22. RABEPRAZOLE SODIUM [Concomitant]
     Route: 048
     Dates: start: 20010101
  23. GASMOTIN [Concomitant]
     Route: 048
     Dates: start: 20010101
  24. THEO-DUR [Concomitant]
     Route: 048
  25. SPIRIVA [Concomitant]
     Dosage: DOSE QUANTITY: 1
     Dates: start: 20080612
  26. SEREVENT [Concomitant]
     Route: 055
     Dates: start: 20080612

REACTIONS (3)
  - DECREASED APPETITE [None]
  - HYPONATRAEMIA [None]
  - LIVER DISORDER [None]
